FAERS Safety Report 21948150 (Version 2)
Quarter: 2023Q1

REPORT INFORMATION
  Report Type: Report from Study
  Country: CO (occurrence: CO)
  Receive Date: 20230203
  Receipt Date: 20230228
  Transmission Date: 20230418
  Serious: Yes (Death, Hospitalization, Other)
  Sender: FDA-Public Use
  Company Number: CO-ABBVIE-4292405

PATIENT
  Sex: Female

DRUGS (3)
  1. HUMIRA [Suspect]
     Active Substance: ADALIMUMAB
     Indication: Rheumatoid arthritis
     Route: 058
     Dates: start: 20081201
  2. HUMIRA [Suspect]
     Active Substance: ADALIMUMAB
  3. METHOTREXATE [Concomitant]
     Active Substance: METHOTREXATE
     Indication: Rheumatoid arthritis
     Route: 048

REACTIONS (24)
  - Death [Fatal]
  - Tuberculosis [Not Recovered/Not Resolved]
  - Balance disorder [Not Recovered/Not Resolved]
  - Discouragement [Not Recovered/Not Resolved]
  - Cerebral disorder [Not Recovered/Not Resolved]
  - Illness [Not Recovered/Not Resolved]
  - Chills [Not Recovered/Not Resolved]
  - Liver disorder [Not Recovered/Not Resolved]
  - Lung disorder [Not Recovered/Not Resolved]
  - Peripheral swelling [Not Recovered/Not Resolved]
  - Loss of consciousness [Not Recovered/Not Resolved]
  - Parathyroid disorder [Recovered/Resolved]
  - Unevaluable event [Not Recovered/Not Resolved]
  - Undersensing [Not Recovered/Not Resolved]
  - Blood calcium abnormal [Recovered/Resolved]
  - Regurgitation [Not Recovered/Not Resolved]
  - Amnesia [Not Recovered/Not Resolved]
  - Fibromyalgia [Recovered/Resolved]
  - Renal disorder [Not Recovered/Not Resolved]
  - Dizziness [Recovered/Resolved]
  - Bacterial infection [Not Recovered/Not Resolved]
  - Pain in extremity [Recovered/Resolved]
  - Pulmonary mass [Not Recovered/Not Resolved]
  - Swelling face [Not Recovered/Not Resolved]

NARRATIVE: CASE EVENT DATE: 20220101
